FAERS Safety Report 5994512-7 (Version None)
Quarter: 2008Q4

REPORT INFORMATION
  Report Type: 
  Country: None (occurrence: None)
  Receive Date: 20081212
  Receipt Date: 20081209
  Transmission Date: 20090506
  Serious: Yes (Hospitalization)
  Sender: FDA-Public Use
  Company Number: GB-BRISTOL-MYERS SQUIBB COMPANY-14437362

PATIENT
  Age: 59 Year
  Sex: Female

DRUGS (10)
  1. CISPLATIN [Suspect]
     Indication: NON-SMALL CELL LUNG CANCER
     Dosage: CYCLE 1 ON 28MAR07 TIME OF EVENT RECEIVED CUMULATIVE DOSE 304 MG
     Route: 042
     Dates: start: 20070418, end: 20070418
  2. GEMCITABINE HCL [Suspect]
     Indication: NON-SMALL CELL LUNG CANCER
     Dosage: DAY1 AND 8 OF 21DAY CYCLE CYCLE 1 ON 28MAR07 TIME OF EVENT RECEIVED CUMULATIVE DOSE 7524 MG
     Route: 042
     Dates: start: 20070418, end: 20070418
  3. DEXAMETHASONE [Concomitant]
     Route: 048
     Dates: start: 20070418, end: 20070422
  4. APREPITANT [Concomitant]
     Route: 048
     Dates: start: 20070418, end: 20070420
  5. LEVOMEPROMAZINE [Concomitant]
     Route: 048
     Dates: start: 20070418
  6. ONDANSETRON [Concomitant]
     Route: 048
     Dates: start: 20070418, end: 20070419
  7. DOMPERIDONE [Concomitant]
     Route: 048
     Dates: start: 20070330
  8. LANSOPRAZOLE [Concomitant]
     Route: 048
     Dates: start: 20070330
  9. CHLORHEXIDINE GLUCONATE [Concomitant]
     Dosage: MOUTH WASH
     Dates: start: 20070328
  10. ZOPICLONE [Concomitant]
     Route: 048
     Dates: start: 20070416

REACTIONS (7)
  - ALANINE AMINOTRANSFERASE INCREASED [None]
  - AORTIC EMBOLUS [None]
  - ARTERIOSCLEROSIS [None]
  - BLOOD ALBUMIN INCREASED [None]
  - BLOOD BILIRUBIN INCREASED [None]
  - EMBOLISM [None]
  - FIBRIN D DIMER INCREASED [None]
